FAERS Safety Report 23090613 (Version 1)
Quarter: 2023Q4

REPORT INFORMATION
  Report Type: Spontaneous
  Country: None (occurrence: US)
  Receive Date: 20231020
  Receipt Date: 20231020
  Transmission Date: 20240109
  Serious: Yes (Life-Threatening, Hospitalization, Other)
  Sender: FDA-Public Use
  Company Number: US-Kindeva Drug Delivery L.P.-2147323

PATIENT
  Age: 44 Year
  Sex: Female

DRUGS (1)
  1. ALBUTEROL SULFATE [Suspect]
     Active Substance: ALBUTEROL SULFATE
     Indication: Asthmatic crisis
     Route: 055

REACTIONS (3)
  - Pneumothorax [Recovered/Resolved]
  - Acidosis [Recovered/Resolved]
  - Bronchospasm paradoxical [Recovered/Resolved]
